FAERS Safety Report 6557149 (Version 8)
Quarter: 2013Q3

REPORT INFORMATION
  Report Type: Report from Study
  Country: KR (occurrence: KR)
  Receive Date: 20080220
  Receipt Date: 20130724
  Transmission Date: 20140515
  Serious: Yes (Death, Hospitalization, Other)
  Sender: FDA-Public Use
  Company Number: KR-SANOFI-AVENTIS-200811427GDDC

PATIENT
  Age: 65 Year
  Sex: Female
  Weight: 63 kg

DRUGS (9)
  1. TAXOTERE [Suspect]
     Indication: BREAST CANCER
     Route: 042
     Dates: start: 20080125, end: 20080125
  2. TAXOTERE [Suspect]
     Indication: BREAST CANCER
     Route: 042
     Dates: start: 20070831, end: 20070831
  3. ASPIRIN [Concomitant]
     Route: 048
  4. GLICLAZIDE [Concomitant]
     Dosage: DOSE UNIT: 80 MG
     Route: 048
  5. AMLODIPINE [Concomitant]
     Dosage: DOSE UNIT: 5 MG
     Route: 048
  6. LOSARTAN POTASSIUM [Concomitant]
     Dosage: DOSE UNIT: 40 MG
     Route: 048
  7. ANALGESICS [Concomitant]
     Route: 048
  8. GABAPENTIN [Concomitant]
     Dosage: DOSE UNIT: 100 MG
     Route: 048
  9. TIANEPTINE [Concomitant]
     Dosage: DOSE UNIT: 12.5 MG
     Route: 048

REACTIONS (4)
  - Renal failure [Fatal]
  - Septic shock [Fatal]
  - Febrile neutropenia [Recovered/Resolved]
  - Hypotension [Not Recovered/Not Resolved]
